FAERS Safety Report 17039331 (Version 1)
Quarter: 2019Q4

REPORT INFORMATION
  Report Type: Spontaneous
  Country: US (occurrence: US)
  Receive Date: 20191115
  Receipt Date: 20191115
  Transmission Date: 20200122
  Serious: Yes (Other)
  Sender: FDA-Public Use
  Company Number: US-GLAXOSMITHKLINE-US2019203785

PATIENT
  Age: 65 Year
  Sex: Female

DRUGS (1)
  1. NUCALA [Suspect]
     Active Substance: MEPOLIZUMAB
     Indication: PRODUCT USED FOR UNKNOWN INDICATION
     Dosage: 300 MG, CYC
     Route: 058
     Dates: start: 20190308

REACTIONS (9)
  - Musculoskeletal stiffness [Recovering/Resolving]
  - Underdose [Recovering/Resolving]
  - Accidental exposure to product [Recovering/Resolving]
  - Back pain [Recovering/Resolving]
  - Product dose omission [Unknown]
  - Eosinophilic granulomatosis with polyangiitis [Unknown]
  - Wrong technique in device usage process [Unknown]
  - Muscle spasms [Recovering/Resolving]
  - Nasal congestion [Recovering/Resolving]

NARRATIVE: CASE EVENT DATE: 20191008
